FAERS Safety Report 14255472 (Version 1)
Quarter: 2017Q4

REPORT INFORMATION
  Report Type: Spontaneous
  Country: US (occurrence: None)
  Receive Date: 20171206
  Receipt Date: 20171206
  Transmission Date: 20180321
  Serious: Yes (Life-Threatening, Other)
  Sender: FDA-Public Use
  Company Number: None

PATIENT
  Age: 69 Year
  Sex: Female
  Weight: 113.4 kg

DRUGS (12)
  1. FISH OIL [Concomitant]
     Active Substance: FISH OIL
  2. NOVOLOG [Concomitant]
     Active Substance: INSULIN ASPART
  3. GABAPENTIN. [Concomitant]
     Active Substance: GABAPENTIN
  4. VENTOLIN HFA [Concomitant]
     Active Substance: ALBUTEROL SULFATE
  5. MULTIPLE VITAMIN [Concomitant]
     Active Substance: VITAMINS
  6. ARNUITY ELLIPTA [Concomitant]
     Active Substance: FLUTICASONE FUROATE
  7. VITAMIN D/CALCIUM [Concomitant]
     Active Substance: CALCIUM\VITAMIN D
  8. FUROSEMIDE. [Concomitant]
     Active Substance: FUROSEMIDE
  9. ALLOPURINOL. [Concomitant]
     Active Substance: ALLOPURINOL
  10. SIMVASTATIN. [Concomitant]
     Active Substance: SIMVASTATIN
  11. LEVEMIR [Concomitant]
     Active Substance: INSULIN DETEMIR
  12. TRULICITY [Suspect]
     Active Substance: DULAGLUTIDE
     Indication: PRODUCT USED FOR UNKNOWN INDICATION
     Dates: start: 20170822, end: 20170919

REACTIONS (5)
  - Pruritus [None]
  - Dyspepsia [None]
  - Fear [None]
  - Asthma [None]
  - Muscle spasms [None]

NARRATIVE: CASE EVENT DATE: 20170921
